FAERS Safety Report 7220179-6 (Version None)
Quarter: 2011Q1

REPORT INFORMATION
  Report Type: 
  Country: None (occurrence: None)
  Receive Date: 20110111
  Receipt Date: 20110106
  Transmission Date: 20110831
  Serious: Yes (Hospitalization, Other)
  Sender: FDA-Public Use
  Company Number: GB-JNJFOC-20110101545

PATIENT
  Age: 71 Year
  Sex: Male

DRUGS (5)
  1. AMILORIDE [Concomitant]
     Route: 065
  2. MICONAZOLE [Suspect]
     Route: 048
  3. MICONAZOLE [Suspect]
     Indication: ORAL CANDIDIASIS
     Route: 048
  4. WARFARIN [Interacting]
     Indication: AORTIC VALVE REPLACEMENT
     Route: 065
  5. FUROSEMIDE [Concomitant]
     Route: 065

REACTIONS (3)
  - DRUG INTERACTION [None]
  - MELAENA [None]
  - INTERNATIONAL NORMALISED RATIO INCREASED [None]
